FAERS Safety Report 10008018 (Version 1)
Quarter: 2014Q1

REPORT INFORMATION
  Report Type: Report from Study
  Country: US (occurrence: US)
  Receive Date: 20140313
  Receipt Date: 20140313
  Transmission Date: 20141002
  Serious: Yes (Hospitalization)
  Sender: FDA-Public Use
  Company Number: US-JNJFOC-20140304756

PATIENT
  Age: 74 Year
  Sex: Male
  Weight: 81.65 kg

DRUGS (4)
  1. REMICADE [Suspect]
     Indication: COLITIS ULCERATIVE
     Route: 042
     Dates: start: 20131107
  2. LOPRESSOR [Concomitant]
     Route: 048
  3. PRILOSEC [Concomitant]
     Route: 048
  4. DESONIDE [Concomitant]
     Indication: ECZEMA
     Route: 061

REACTIONS (2)
  - Diverticulitis [Unknown]
  - Therapeutic response decreased [Unknown]
